FAERS Safety Report 25470278 (Version 1)
Quarter: 2025Q2

REPORT INFORMATION
  Report Type: Report from Study
  Country: US (occurrence: US)
  Receive Date: 20250623
  Receipt Date: 20250623
  Transmission Date: 20250717
  Serious: Yes (Other)
  Sender: ABBVIE
  Company Number: US-ABBVIE-6307803

PATIENT
  Age: 63 Year
  Sex: Male

DRUGS (1)
  1. RINVOQ [Suspect]
     Active Substance: UPADACITINIB
     Indication: Colitis ulcerative
     Route: 048
     Dates: start: 20250322

REACTIONS (8)
  - Neoplasm malignant [Unknown]
  - Neck mass [Not Recovered/Not Resolved]
  - Musculoskeletal stiffness [Unknown]
  - Haemoptysis [Unknown]
  - Mouth haemorrhage [Recovering/Resolving]
  - Mass [Unknown]
  - Fatigue [Not Recovered/Not Resolved]
  - Blood calcium increased [Not Recovered/Not Resolved]

NARRATIVE: CASE EVENT DATE: 20250101
